FAERS Safety Report 16364120 (Version 3)
Quarter: 2019Q2

REPORT INFORMATION
  Report Type: Spontaneous
  Country: BR (occurrence: BR)
  Receive Date: 20190528
  Receipt Date: 20190618
  Transmission Date: 20190711
  Serious: Yes (Other)
  Sender: FDA-Public Use
  Company Number: BR-ALLERGAN-1922051US

PATIENT
  Sex: Female

DRUGS (7)
  1. OMEPRAZOLE. [Concomitant]
     Active Substance: OMEPRAZOLE
     Dosage: 10 MG, UNK
  2. ATENOLOL/HCTZ [Concomitant]
     Active Substance: ATENOLOL
  3. GANFORT [Suspect]
     Active Substance: BIMATOPROST\TIMOLOL
     Indication: GLAUCOMA
     Dosage: 2 GTT, BID
     Route: 047
     Dates: start: 2009, end: 201906
  4. LACRIFILM [Concomitant]
     Active Substance: CARBOXYMETHYLCELLULOSE SODIUM
  5. RISPERIDONE. [Concomitant]
     Active Substance: RISPERIDONE
  6. AZOPT [Concomitant]
     Active Substance: BRINZOLAMIDE
  7. DENYL [Concomitant]
     Dosage: 20 MG, UNK

REACTIONS (6)
  - Intraocular pressure increased [Unknown]
  - Foreign body in eye [Recovered/Resolved]
  - Blindness unilateral [Unknown]
  - Eye injury [Recovered/Resolved]
  - Eye pain [Recovered/Resolved]
  - Eye pain [Recovered/Resolved]

NARRATIVE: CASE EVENT DATE: 20190522
